FAERS Safety Report 21484432 (Version 1)
Quarter: 2022Q4

REPORT INFORMATION
  Report Type: Spontaneous
  Country: FR (occurrence: FR)
  Receive Date: 20221020
  Receipt Date: 20221020
  Transmission Date: 20230113
  Serious: Yes (Hospitalization)
  Sender: FDA-Public Use
  Company Number: None

PATIENT
  Age: 88 Year
  Sex: Female
  Weight: 78 kg

DRUGS (12)
  1. ALLOPURINOL [Suspect]
     Active Substance: ALLOPURINOL
     Indication: Product used for unknown indication
     Dates: end: 20220620
  2. CIPROFLOXACIN [Suspect]
     Active Substance: CIPROFLOXACIN
     Indication: Urinary tract infection
     Dosage: 250MG 3X/D
     Dates: start: 20220615, end: 20220621
  3. FUROSEMIDE [Suspect]
     Active Substance: FUROSEMIDE
     Indication: Hypertension
     Dosage: 40MG 2X/D
     Dates: end: 20220620
  4. METFORMIN [Suspect]
     Active Substance: METFORMIN HYDROCHLORIDE
     Indication: Diabetes mellitus
     Dates: end: 20220620
  5. PANTOPRAZOLE [Suspect]
     Active Substance: PANTOPRAZOLE
     Indication: Product used for unknown indication
     Dates: end: 20220620
  6. FERROUS SULFATE [Suspect]
     Active Substance: FERROUS SULFATE
     Indication: Malnutrition
     Dosage: STRENGTH: 80 MG
     Dates: end: 20220620
  7. VALSARTAN [Suspect]
     Active Substance: VALSARTAN
     Indication: Hypertension
     Dosage: 80MG 2X/D
     Dates: end: 20220620
  8. NICARDIPINE [Concomitant]
     Active Substance: NICARDIPINE
  9. CHOLECALCIFEROL [Concomitant]
     Active Substance: CHOLECALCIFEROL
  10. HYDROCORTISONE [Concomitant]
     Active Substance: HYDROCORTISONE
  11. OXAZEPAM [Concomitant]
     Active Substance: OXAZEPAM
  12. LEVOTHYROXINE [Concomitant]
     Active Substance: LEVOTHYROXINE
     Dosage: STRENGTH:  175 MICROGRAMS, SCORED TABLET

REACTIONS (3)
  - Acute kidney injury [Recovered/Resolved]
  - Confusional state [Recovered/Resolved]
  - Decreased appetite [Recovered/Resolved]

NARRATIVE: CASE EVENT DATE: 20220601
